FAERS Safety Report 13998547 (Version 2)
Quarter: 2021Q3

REPORT INFORMATION
  Report Type: Report from Study
  Country: US (occurrence: US)
  Receive Date: 20170922
  Receipt Date: 20210915
  Transmission Date: 20211014
  Serious: Yes (Death, Hospitalization)
  Sender: FDA-Public Use
  Company Number: US-CELGENEUS-USA-20170905409

PATIENT
  Age: 65 Year

DRUGS (4)
  1. VELCADE [Suspect]
     Active Substance: BORTEZOMIB
     Indication: PLASMA CELL MYELOMA
     Dosage: 2.7
     Route: 041
     Dates: start: 20130320, end: 20130415
  2. DEXAMETHASONE IV [Suspect]
     Active Substance: DEXAMETHASONE
     Indication: PLASMA CELL MYELOMA
     Dosage: 20
     Route: 041
     Dates: start: 20130320, end: 20130415
  3. REVLIMID [Suspect]
     Active Substance: LENALIDOMIDE
     Indication: PLASMA CELL MYELOMA
     Dosage: 10 MILLIGRAM
     Route: 048
     Dates: start: 20120425, end: 20130227
  4. VELCADE [Suspect]
     Active Substance: BORTEZOMIB
     Dosage: 1.3
     Route: 041
     Dates: start: 20130320

REACTIONS (3)
  - Plasma cell myeloma [Fatal]
  - Epistaxis [Recovered/Resolved]
  - Febrile neutropenia [Recovered/Resolved]

NARRATIVE: CASE EVENT DATE: 20130329
